FAERS Safety Report 4728204-9 (Version None)
Quarter: 2005Q3

REPORT INFORMATION
  Report Type: 
  Country: None (occurrence: None)
  Receive Date: 20050727
  Receipt Date: 20050527
  Transmission Date: 20060218
  Serious: Yes (Life-Threatening, Hospitalization)
  Sender: FDA-Public Use
  Company Number: 2005FR-00144

PATIENT
  Age: 61 Year
  Sex: Female

DRUGS (5)
  1. AMOXICILLIN [Suspect]
     Indication: LOWER RESPIRATORY TRACT INFECTION
     Dosage: ORAL
     Route: 048
     Dates: start: 20050113, end: 20050116
  2. DOXAZOSIN [Concomitant]
  3. METOPROLOL [Concomitant]
  4. PERINDOPRIL [Concomitant]
  5. ALLOPURINOL [Concomitant]

REACTIONS (2)
  - BONE MARROW DEPRESSION [None]
  - NEUTROPENIA [None]
